FAERS Safety Report 18229029 (Version 3)
Quarter: 2020Q4

REPORT INFORMATION
  Report Type: Report from Study
  Country: DK (occurrence: DK)
  Receive Date: 20200903
  Receipt Date: 20201106
  Transmission Date: 20210113
  Serious: Yes (Hospitalization)
  Sender: FDA-Public Use
  Company Number: DK-TAKEDA-2020TUS037076

PATIENT
  Age: 73 Year
  Sex: Female

DRUGS (12)
  1. BORTEZOMIB. [Suspect]
     Active Substance: BORTEZOMIB
     Dosage: 5.2 MILLIGRAM, 1/WEEK
     Route: 058
     Dates: start: 20200519, end: 20200530
  2. REVLIMID [Suspect]
     Active Substance: LENALIDOMIDE
     Dosage: 15 MILLIGRAM, QD
     Route: 048
     Dates: start: 20200519, end: 20200530
  3. DEXAMETHASONE. [Suspect]
     Active Substance: DEXAMETHASONE
     Dosage: 80 MILLIGRAM, 1/WEEK
     Route: 048
     Dates: start: 20200519, end: 20200530
  4. DEXAMETHASONE. [Suspect]
     Active Substance: DEXAMETHASONE
     Dosage: 40 MILLIGRAM, 1/WEEK
     Route: 048
     Dates: start: 20200714, end: 20200728
  5. REVLIMID [Suspect]
     Active Substance: LENALIDOMIDE
     Indication: PLASMA CELL MYELOMA
     Dosage: 10 MILLIGRAM, QD
     Route: 048
     Dates: start: 20200428, end: 20200509
  6. DEXAMETHASONE. [Suspect]
     Active Substance: DEXAMETHASONE
     Indication: PLASMA CELL MYELOMA
     Dosage: 80 MILLIGRAM, 1/WEEK
     Route: 048
     Dates: start: 20200428, end: 20200509
  7. DEXAMETHASONE. [Suspect]
     Active Substance: DEXAMETHASONE
     Dosage: 80 MILLIGRAM, 1/WEEK
     Route: 048
     Dates: start: 20200609, end: 20200622
  8. BORTEZOMIB. [Suspect]
     Active Substance: BORTEZOMIB
     Dosage: 5.2 MILLIGRAM, 1/WEEK
     Route: 058
     Dates: start: 20200609, end: 20200622
  9. BORTEZOMIB. [Suspect]
     Active Substance: BORTEZOMIB
     Indication: PLASMA CELL MYELOMA
     Dosage: 5.2 MILLIGRAM, 1/WEEK
     Route: 058
     Dates: start: 20200428, end: 20200509
  10. BORTEZOMIB. [Suspect]
     Active Substance: BORTEZOMIB
     Dosage: 2.6 MILLIGRAM, 1/WEEK
     Route: 058
     Dates: start: 20200714, end: 20200728
  11. REVLIMID [Suspect]
     Active Substance: LENALIDOMIDE
     Dosage: 15 MILLIGRAM, QD
     Route: 048
     Dates: start: 20200609, end: 20200622
  12. REVLIMID [Suspect]
     Active Substance: LENALIDOMIDE
     Dosage: 10 MILLIGRAM, QD
     Route: 048
     Dates: start: 20200714, end: 20200728

REACTIONS (4)
  - Nausea [Recovered/Resolved]
  - Fluid overload [Recovered/Resolved]
  - Fatigue [Recovering/Resolving]
  - Pruritus [Recovering/Resolving]

NARRATIVE: CASE EVENT DATE: 20200605
